FAERS Safety Report 23452629 (Version 1)
Quarter: 2024Q1

REPORT INFORMATION
  Report Type: Spontaneous
  Country: US (occurrence: US)
  Receive Date: 20240129
  Receipt Date: 20240129
  Transmission Date: 20240410
  Serious: Yes (Hospitalization)
  Sender: FDA-Public Use
  Company Number: US-Vifor (International) Inc.-VIT-2024-00680

PATIENT
  Sex: Male

DRUGS (2)
  1. VELTASSA [Suspect]
     Active Substance: PATIROMER
     Indication: Product used for unknown indication
  2. VELTASSA [Suspect]
     Active Substance: PATIROMER
     Dosage: FOR ONE WEEK

REACTIONS (3)
  - Hypervolaemia [Unknown]
  - Cardiac failure congestive [Unknown]
  - Cellulitis [Unknown]
